FAERS Safety Report 6313586-7 (Version None)
Quarter: 2009Q3

REPORT INFORMATION
  Report Type: 
  Country: None (occurrence: None)
  Receive Date: 20090818
  Receipt Date: 20090807
  Transmission Date: 20100115
  Serious: Yes (Hospitalization)
  Sender: FDA-Public Use
  Company Number: GB-ROCHE-649643

PATIENT
  Age: 9 Year
  Sex: Female

DRUGS (1)
  1. TAMIFLU [Suspect]
     Route: 065
     Dates: start: 20090723, end: 20090726

REACTIONS (4)
  - GINGIVAL SWELLING [None]
  - RASH [None]
  - SWOLLEN TONGUE [None]
  - VOMITING [None]
